FAERS Safety Report 4947670-7 (Version None)
Quarter: 2006Q1

REPORT INFORMATION
  Report Type: 
  Country: None (occurrence: None)
  Receive Date: 20060310
  Receipt Date: 20060301
  Transmission Date: 20060701
  Serious: Yes (Other)
  Sender: FDA-Public Use
  Company Number: 2006-03-0030

PATIENT
  Age: 46 Year
  Sex: Male

DRUGS (7)
  1. PEG-INTRON [Suspect]
     Indication: CHRONIC HEPATITIS
     Dosage: 1 UG/KG QW SUBCUTANEOUS
     Route: 058
     Dates: start: 20020215, end: 20020504
  2. PEG-INTRON [Suspect]
     Indication: CHRONIC HEPATITIS
     Dosage: 1 UG/KG QW SUBCUTANEOUS
     Route: 058
     Dates: start: 20020215, end: 20021025
  3. PEG-INTRON [Suspect]
     Indication: CHRONIC HEPATITIS
     Dosage: 1 UG/KG QW SUBCUTANEOUS
     Route: 058
     Dates: start: 20020729, end: 20021025
  4. REBETOL [Suspect]
     Indication: HEPATITIS C
     Dosage: 200-400MG QD ORAL
     Route: 048
     Dates: start: 20020215, end: 20020429
  5. REBETOL [Suspect]
     Indication: HEPATITIS C
     Dosage: 200-400MG QD ORAL
     Route: 048
     Dates: start: 20020729, end: 20021025
  6. REBETOL [Suspect]
     Indication: HEPATITIS C
     Dosage: 200-400MG QD ORAL
     Route: 048
     Dates: start: 20020215
  7. REBETOL [Suspect]
     Indication: HEPATITIS C
     Dosage: 200-400MG QD ORAL
     Route: 048
     Dates: start: 20051012

REACTIONS (4)
  - ANAEMIA [None]
  - HEPATIC ARTERY THROMBOSIS [None]
  - LEUKOPENIA [None]
  - LIVER TRANSPLANT [None]
